FAERS Safety Report 25867228 (Version 1)
Quarter: 2025Q4

REPORT INFORMATION
  Report Type: Spontaneous
  Country: US (occurrence: US)
  Receive Date: 20251001
  Receipt Date: 20251001
  Transmission Date: 20260118
  Serious: Yes (Hospitalization)
  Sender: Kenvue
  Company Number: US-KENVUE-20250912170

PATIENT
  Sex: Male

DRUGS (2)
  1. NEOSPORIN [Suspect]
     Active Substance: BACITRACIN ZINC\NEOMYCIN SULFATE\POLYMYXIN B SULFATE
     Indication: Wound
     Dosage: UNK
     Route: 061
     Dates: start: 2017
  2. DEVICE [Concomitant]
     Active Substance: DEVICE
     Indication: Wound
     Dosage: UNK
     Route: 062
     Dates: start: 2017

REACTIONS (1)
  - Application site scar [Not Recovered/Not Resolved]

NARRATIVE: CASE EVENT DATE: 20170101
